FAERS Safety Report 19778264 (Version 1)
Quarter: 2021Q3

REPORT INFORMATION
  Report Type: Spontaneous
  Country: US (occurrence: US)
  Receive Date: 20210902
  Receipt Date: 20210902
  Transmission Date: 20211014
  Serious: Yes (Disabling, Other)
  Sender: FDA-Public Use
  Company Number: None

PATIENT
  Age: 25 Year
  Sex: Female
  Weight: 69.75 kg

DRUGS (1)
  1. OZEMPIC [Suspect]
     Active Substance: SEMAGLUTIDE
     Indication: WEIGHT DECREASED
     Dosage: ?          QUANTITY:1 PEN;OTHER FREQUENCY:WEEKLY;?
     Route: 058
     Dates: start: 20200911, end: 20210828

REACTIONS (2)
  - Cholelithiasis [None]
  - Cholecystitis infective [None]

NARRATIVE: CASE EVENT DATE: 20210613
